FAERS Safety Report 9748374 (Version 1)
Quarter: 2013Q4

REPORT INFORMATION
  Report Type: Spontaneous
  Country: US (occurrence: None)
  Receive Date: 20131206
  Receipt Date: 20131206
  Transmission Date: 20140711
  Serious: Yes (Hospitalization)
  Sender: FDA-Public Use
  Company Number: None

PATIENT
  Age: 21 Year
  Sex: Male
  Weight: 60.6 kg

DRUGS (4)
  1. CYTARABINE [Suspect]
  2. DAUNORUBICIN [Suspect]
  3. ETOPOSIDE (VP-16) [Suspect]
  4. GEMTUZUMAB OZOGAMICIN [Suspect]

REACTIONS (1)
  - Squamous cell carcinoma [None]
